FAERS Safety Report 22905262 (Version 2)
Quarter: 2023Q4

REPORT INFORMATION
  Report Type: Other
  Country: JP (occurrence: JP)
  Receive Date: 20230905
  Receipt Date: 20231109
  Transmission Date: 20240109
  Serious: Yes (Other)
  Sender: FDA-Public Use
  Company Number: JP-ALVOGEN-2023092213

PATIENT
  Age: 82 Year
  Sex: Male

DRUGS (6)
  1. CLINDAMYCIN [Suspect]
     Active Substance: CLINDAMYCIN
     Indication: Brain abscess
  2. MEROPENEM [Suspect]
     Active Substance: MEROPENEM
     Indication: Brain abscess
  3. MEROPENEM [Suspect]
     Active Substance: MEROPENEM
     Indication: Brain abscess
  4. MEROPENEM [Suspect]
     Active Substance: MEROPENEM
     Indication: Brain abscess
  5. CEFTRIAXONE [Suspect]
     Active Substance: CEFTRIAXONE\CEFTRIAXONE SODIUM
     Indication: Brain abscess
  6. VANCOMYCIN [Suspect]
     Active Substance: VANCOMYCIN
     Indication: Brain abscess

REACTIONS (2)
  - Drug eruption [Unknown]
  - Drug ineffective [Unknown]
